FAERS Safety Report 8194228-5 (Version None)
Quarter: 2012Q1

REPORT INFORMATION
  Report Type: 
  Country: None (occurrence: None)
  Receive Date: 20120308
  Receipt Date: 20120229
  Transmission Date: 20120608
  Serious: Yes (Other)
  Sender: FDA-Public Use
  Company Number: US-BAXTER-2012BH006082

PATIENT
  Age: 61 Year
  Sex: Female

DRUGS (2)
  1. BUMINATE 25% [Suspect]
     Route: 065
     Dates: start: 20101201
  2. BUMINATE 25% [Suspect]
     Indication: HYPOALBUMINAEMIA
     Route: 065
     Dates: start: 20100601

REACTIONS (4)
  - URINARY TRACT INFECTION [None]
  - FLUID RETENTION [None]
  - DYSPNOEA [None]
  - EATING DISORDER [None]
